FAERS Safety Report 11220651 (Version 6)
Quarter: 2015Q4

REPORT INFORMATION
  Report Type: Report from Study
  Country: FR (occurrence: FR)
  Receive Date: 20150626
  Receipt Date: 20151001
  Transmission Date: 20160304
  Serious: Yes (Other)
  Sender: FDA-Public Use
  Company Number: FR-ROCHE-1598074

PATIENT
  Age: 79 Year
  Sex: Female
  Weight: 67 kg

DRUGS (8)
  1. VEMURAFENIB [Suspect]
     Active Substance: VEMURAFENIB
     Dosage: TWO TABLETS IN THE MORNING AND IN THE EVENING EVERY MONDAY AND FRIDAY?480 MG X 2
     Route: 048
     Dates: start: 20150709
  2. VEMURAFENIB [Suspect]
     Active Substance: VEMURAFENIB
     Indication: NEOPLASM MALIGNANT
     Dosage: LAST ADMINISTRATION BEFORE SAE 18/JUN/2015, LAST DOSE 960 X 2 MG (CUMULATIVE DOSE SINCE FIRST ADMINI
     Route: 048
     Dates: start: 20150606, end: 20150619
  3. VEMURAFENIB [Suspect]
     Active Substance: VEMURAFENIB
     Dosage: 3 TABLETS OF 720 MG WAS RESTARTED IN THE MORNING AND EVENING?LAST ADMINISTRATION BEFORE SAE 18/JUN/2
     Route: 048
     Dates: start: 20150626, end: 20150707
  4. AMLODIPINE [Concomitant]
     Active Substance: AMLODIPINE BESYLATE
     Indication: HYPERTENSION
     Dosage: 1 TABLET IN THE MORNING AND IN THE EVENING
     Route: 048
     Dates: start: 20150227
  5. STILNOX [Concomitant]
     Active Substance: ZOLPIDEM TARTRATE
     Indication: INSOMNIA
     Dosage: HALF AT BEDTIME
     Route: 048
     Dates: start: 20140425
  6. NEBIVOLOL. [Concomitant]
     Active Substance: NEBIVOLOL
     Indication: HYPERTENSION
     Dosage: 1 IN THE MORNING
     Route: 048
     Dates: start: 20141110
  7. FUROSEMIDE. [Concomitant]
     Active Substance: FUROSEMIDE
     Indication: HYPERTENSION
     Route: 048
     Dates: start: 20150227
  8. SEROPLEX [Concomitant]
     Active Substance: ESCITALOPRAM OXALATE
     Indication: ANXIETY
     Route: 048
     Dates: start: 20140425

REACTIONS (1)
  - Renal failure [Recovered/Resolved]

NARRATIVE: CASE EVENT DATE: 20150619
